FAERS Safety Report 7874257-9 (Version None)
Quarter: 2011Q4

REPORT INFORMATION
  Report Type: 
  Country: None (occurrence: None)
  Receive Date: 20111030
  Receipt Date: 20110517
  Transmission Date: 20120403
  Serious: No
  Sender: FDA-Public Use
  Company Number: US-AMGEN-USASP2011025488

PATIENT
  Age: 61 Year
  Sex: Male
  Weight: 74.83 kg

DRUGS (10)
  1. AMLODIPINE [Concomitant]
     Dosage: 10 MG, UNK
     Route: 048
  2. FOLIC ACID [Concomitant]
     Dosage: 1 MG, UNK
     Route: 048
  3. MULTI-VITAMINS [Concomitant]
     Dosage: UNK
     Route: 048
  4. ENBREL [Suspect]
     Indication: PRODUCT USED FOR UNKNOWN INDICATION
     Dosage: 50 MG, QWK
     Route: 058
  5. XANAX [Concomitant]
     Dosage: 2 MG, UNK
     Route: 048
  6. MIRTAZAPINE [Concomitant]
     Dosage: 30 MG, UNK
     Route: 048
  7. SIMVASTATIN [Concomitant]
     Dosage: 20 MG, UNK
     Route: 048
  8. PLAQUENIL [Concomitant]
     Dosage: 200 MG, UNK
     Route: 048
  9. LEFLUNOMIDE [Concomitant]
     Dosage: 20 MG, UNK
     Route: 048
  10. PREVACID [Concomitant]
     Dosage: 30 MG, UNK

REACTIONS (2)
  - DIARRHOEA [None]
  - ABDOMINAL PAIN [None]
